FAERS Safety Report 7115801-9 (Version None)
Quarter: 2010Q4

REPORT INFORMATION
  Report Type: 
  Country: None (occurrence: None)
  Receive Date: 20101122
  Receipt Date: 20101112
  Transmission Date: 20110411
  Serious: Yes (Hospitalization)
  Sender: FDA-Public Use
  Company Number: GB-MPIJNJ-2010-05687

PATIENT

DRUGS (2)
  1. VELCADE [Suspect]
     Indication: MULTIPLE MYELOMA
     Dosage: UNK
     Route: 040
     Dates: end: 20100423
  2. VELCADE [Suspect]
     Dosage: 2.1 MG, CYCLIC
     Route: 040
     Dates: end: 20100625

REACTIONS (1)
  - HOSPITALISATION [None]
